FAERS Safety Report 8571647 (Version 8)
Quarter: 2013Q1

REPORT INFORMATION
  Report Type: Spontaneous
  Country: US (occurrence: US)
  Receive Date: 20120521
  Receipt Date: 20130319
  Transmission Date: 20140127
  Serious: Yes (Hospitalization, Disabling, Other)
  Sender: FDA-Public Use
  Company Number: US-009507513-1205USA02818

PATIENT
  Sex: Female
  Weight: 50.34 kg

DRUGS (8)
  1. FOSAMAX [Suspect]
     Indication: PROPHYLAXIS
     Dosage: 10 MG, UNK
     Route: 048
     Dates: start: 199901, end: 2006
  2. FOSAMAX [Suspect]
     Indication: OSTEOPOROSIS
     Dosage: 70 MG, UNK
     Route: 048
     Dates: end: 2006
  3. FOSAMAX [Suspect]
     Dosage: 35 MG, QW
     Route: 048
  4. PREMARIN [Concomitant]
     Indication: OESTROGEN REPLACEMENT THERAPY
     Dosage: 1.25-9 MG, QD
     Dates: start: 1998
  5. PREDNISONE [Concomitant]
     Dosage: 5 MG, UNK
  6. ENBREL [Concomitant]
     Dosage: 50 MG, QW
  7. ARTHROTEC [Concomitant]
  8. ASCORBIC ACID [Concomitant]
     Dosage: 1 DF, QD
     Dates: start: 1997

REACTIONS (81)
  - Open reduction of fracture [Not Recovered/Not Resolved]
  - Stress fracture [Unknown]
  - Osteoporosis [Not Recovered/Not Resolved]
  - Oophorectomy [Unknown]
  - Low turnover osteopathy [Not Recovered/Not Resolved]
  - Bone graft [Recovered/Resolved]
  - Internal fixation of fracture [Recovered/Resolved]
  - Fracture nonunion [Recovered/Resolved]
  - Arthritis bacterial [Unknown]
  - Postoperative wound infection [Unknown]
  - Bunion operation [Unknown]
  - Rotator cuff repair [Unknown]
  - Femur fracture [Not Recovered/Not Resolved]
  - Tooth fracture [Unknown]
  - Impaired healing [Unknown]
  - Otitis media acute [Recovered/Resolved]
  - Temporomandibular joint syndrome [Unknown]
  - Fall [Unknown]
  - Allergy to arthropod sting [Recovered/Resolved]
  - Tendonitis [Unknown]
  - Thyroid disorder [Unknown]
  - Inappropriate schedule of drug administration [Unknown]
  - Foot fracture [Unknown]
  - Osteopenia [Unknown]
  - Device failure [Unknown]
  - Blood cortisol increased [Unknown]
  - Eye injury [Unknown]
  - Joint effusion [Unknown]
  - Synovitis [Unknown]
  - Oesophageal spasm [Unknown]
  - Osteoporosis [Unknown]
  - Hypercholesterolaemia [Unknown]
  - Fibula fracture [Unknown]
  - Labile hypertension [Unknown]
  - Grief reaction [Unknown]
  - Trismus [Recovered/Resolved]
  - Osteoarthritis [Unknown]
  - Major depression [Unknown]
  - Osteomyelitis [Recovered/Resolved]
  - Device related infection [Recovered/Resolved]
  - Medical device removal [Unknown]
  - Bursitis [Unknown]
  - Periostitis [Unknown]
  - Foot deformity [Unknown]
  - Foot deformity [Unknown]
  - Arthropod bite [Unknown]
  - Cellulitis [Unknown]
  - Anxiety disorder [Unknown]
  - Hypertension [Unknown]
  - Spinal osteoarthritis [Unknown]
  - Sacroiliitis [Unknown]
  - Intervertebral disc degeneration [Unknown]
  - Labyrinthitis [Unknown]
  - Staphylococcal infection [Unknown]
  - Foot fracture [Unknown]
  - Renal cyst [Unknown]
  - Ligament injury [Unknown]
  - Cervix disorder [Unknown]
  - Insomnia [Unknown]
  - Hyperkeratosis [Unknown]
  - Wound drainage [Recovered/Resolved]
  - Rheumatoid arthritis [Unknown]
  - Ankle fracture [Unknown]
  - Hand fracture [Unknown]
  - Psoriasis [Unknown]
  - Allergy to arthropod bite [Unknown]
  - Foot fracture [Unknown]
  - Adverse event [Unknown]
  - Rotator cuff syndrome [Unknown]
  - Gait disturbance [Unknown]
  - Tooth disorder [Unknown]
  - Gastrointestinal disorder [Unknown]
  - Arthritis [Unknown]
  - Tinnitus [Unknown]
  - Rheumatic disorder [Unknown]
  - Joint dislocation [Unknown]
  - Wrong technique in drug usage process [Unknown]
  - Gastrooesophageal reflux disease [Unknown]
  - Pain in extremity [Unknown]
  - Pain in extremity [Unknown]
  - Vertigo [Recovering/Resolving]
